FAERS Safety Report 9062337 (Version 4)
Quarter: 2014Q2

REPORT INFORMATION
  Report Type: Spontaneous
  Country: US (occurrence: US)
  Receive Date: 20130213
  Receipt Date: 20140415
  Transmission Date: 20141212
  Serious: Yes (Hospitalization)
  Sender: FDA-Public Use
  Company Number: US-GLAXOSMITHKLINE-A0996424A

PATIENT
  Age: 48 Year
  Sex: Male
  Weight: 89.1 kg

DRUGS (1)
  1. AVANDIA [Suspect]
     Indication: DIABETES MELLITUS
     Dosage: 4MG TWICE PER DAY
     Route: 048
     Dates: start: 20010822, end: 200611

REACTIONS (4)
  - Myocardial infarction [Unknown]
  - Angina pectoris [Unknown]
  - Hypoaesthesia [Unknown]
  - Cardiac disorder [Unknown]
